FAERS Safety Report 4788420-7 (Version None)
Quarter: 2005Q3

REPORT INFORMATION
  Report Type: 
  Country: None (occurrence: None)
  Receive Date: 20050921
  Receipt Date: 20041018
  Transmission Date: 20060218
  Serious: Yes (Other)
  Sender: FDA-Public Use
  Company Number: 2004080528

PATIENT
  Age: 63 Year
  Sex: Female

DRUGS (11)
  1. DILANTIN [Suspect]
     Indication: CONVULSION
     Dosage: 600 MG (300 MG, 2 IN 1 D) ORAL
     Route: 048
     Dates: start: 20030413, end: 20040701
  2. RANITIDINE HYDROCHLORIDE [Suspect]
     Indication: ILL-DEFINED DISORDER
     Dates: end: 20040101
  3. AMITRIPTYLINE HCL [Concomitant]
  4. CLONAZEPAM [Concomitant]
  5. FAMOTIDINE [Concomitant]
  6. ZOLPIDEM TARTRATE [Concomitant]
  7. BACLOFEN [Concomitant]
  8. FENTANYL [Concomitant]
  9. MULTIVITAMINS (ASCORBIC ACID, ERGOCALCIFEROL, FOLIC ACID, NICOTINAMIDE [Concomitant]
  10. GUAIFENESIN [Concomitant]
  11. SENNA FRUIT [Concomitant]

REACTIONS (1)
  - THROMBOCYTOPENIA [None]
